FAERS Safety Report 5185349-X (Version None)
Quarter: 2006Q4

REPORT INFORMATION
  Report Type: 
  Country: None (occurrence: None)
  Receive Date: 20061212
  Receipt Date: 20061130
  Transmission Date: 20070319
  Serious: Yes (Hospitalization)
  Sender: FDA-Public Use
  Company Number: 2006PV023207

PATIENT
  Age: 76 Year
  Sex: Female
  Weight: 63.5036 kg

DRUGS (8)
  1. BYETTA [Suspect]
     Indication: DIABETES MELLITUS NON-INSULIN-DEPENDENT
     Dosage: 10 MCG; BID; SC;  5 MCG; BID; SC
     Route: 058
     Dates: start: 20051003, end: 20051001
  2. BYETTA [Suspect]
     Indication: DIABETES MELLITUS NON-INSULIN-DEPENDENT
     Dosage: 10 MCG; BID; SC;  5 MCG; BID; SC
     Route: 058
     Dates: start: 20051031
  3. LANTUS [Concomitant]
  4. ATENOLOL [Concomitant]
  5. HYZAAR [Concomitant]
  6. NORVASC [Concomitant]
  7. ACCUPRIL [Concomitant]
  8. LIPITOR [Concomitant]

REACTIONS (8)
  - ALOPECIA [None]
  - ATRIAL FIBRILLATION [None]
  - CONDITION AGGRAVATED [None]
  - DIZZINESS [None]
  - HYPERTENSION [None]
  - HYPOTRICHOSIS [None]
  - PARAESTHESIA [None]
  - WEIGHT DECREASED [None]
